FAERS Safety Report 20097220 (Version 2)
Quarter: 2021Q4

REPORT INFORMATION
  Report Type: Other
  Country: US (occurrence: None)
  Receive Date: 20211122
  Receipt Date: 20211217
  Transmission Date: 20220303
  Serious: Yes (Hospitalization)
  Sender: FDA-Public Use
  Company Number: US-ROCHE-2956906

PATIENT
  Sex: Female

DRUGS (1)
  1. OCREVUS [Suspect]
     Active Substance: OCRELIZUMAB
     Indication: Relapsing multiple sclerosis
     Dosage: VIAL; DATE OF TREATMENT = 4/23/2018, 5/7/2018, 12/22/2020
     Route: 065
     Dates: start: 20180423

REACTIONS (1)
  - Urinary tract infection [Recovered/Resolved]
